FAERS Safety Report 4698654-8 (Version None)
Quarter: 2005Q2

REPORT INFORMATION
  Report Type: 
  Country: None (occurrence: None)
  Receive Date: 20050622
  Receipt Date: 20050324
  Transmission Date: 20051028
  Serious: No
  Sender: FDA-Public Use
  Company Number: SU-2005-003365

PATIENT
  Age: 46 Year
  Sex: Female
  Weight: 109.7705 kg

DRUGS (6)
  1. BENICAR HCT [Suspect]
     Indication: HYPERTENSION
     Dosage: 20.125 MG QD PO
     Route: 048
     Dates: start: 20041201
  2. ALLEGRA [Concomitant]
  3. NASONEX [Concomitant]
  4. PROTONIX [Concomitant]
  5. FLEXERIL [Concomitant]
  6. ULTRACET [Concomitant]

REACTIONS (2)
  - HYPOTENSION [None]
  - NERVOUSNESS [None]
